FAERS Safety Report 11092906 (Version 1)
Quarter: 2015Q2

REPORT INFORMATION
  Report Type: Spontaneous
  Country: US (occurrence: None)
  Receive Date: 20150428
  Receipt Date: 20150428
  Transmission Date: 20150821
  Serious: Yes (Other)
  Sender: FDA-Public Use
  Company Number: 2453650

PATIENT
  Age: 64 Year
  Sex: Female
  Weight: 75.9 kg

DRUGS (1)
  1. CIPROFLOXACIN AND DEXTROSE [Suspect]
     Active Substance: CIPROFLOXACIN
     Indication: PREOPERATIVE CARE
     Route: 042
     Dates: start: 20140627, end: 20140627

REACTIONS (1)
  - Injection site streaking [None]

NARRATIVE: CASE EVENT DATE: 20140627
